FAERS Safety Report 26067388 (Version 1)
Quarter: 2025Q4

REPORT INFORMATION
  Report Type: Spontaneous
  Country: TW (occurrence: TW)
  Receive Date: 20251120
  Receipt Date: 20251120
  Transmission Date: 20260117
  Serious: Yes (Hospitalization, Other)
  Sender: JOHNSON AND JOHNSON
  Company Number: TW-JNJFOC-20251158221

PATIENT
  Age: 22 Year
  Sex: Female

DRUGS (12)
  1. TOPAMAX [Suspect]
     Active Substance: TOPIRAMATE
     Indication: Trichotillomania
     Route: 048
     Dates: start: 20250930, end: 20251010
  2. HALOPERIDOL [Suspect]
     Active Substance: HALOPERIDOL
     Indication: Feeling of relaxation
     Route: 030
     Dates: start: 20251002, end: 20251003
  3. TOPAMAX [Suspect]
     Active Substance: TOPIRAMATE
     Indication: Trichotillomania
     Route: 048
     Dates: start: 20250930, end: 20251010
  4. CARBIMAZOLE [Suspect]
     Active Substance: CARBIMAZOLE
     Indication: Thyroid disorder
     Route: 048
     Dates: start: 20250930, end: 20251010
  5. VALDOXAN [Suspect]
     Active Substance: AGOMELATINE
     Indication: Trichotillomania
     Route: 048
     Dates: start: 20250930, end: 20251010
  6. RIVOTRIL [Suspect]
     Active Substance: CLONAZEPAM
     Indication: Mental disorder
     Route: 048
  7. ATIVAN [Suspect]
     Active Substance: LORAZEPAM
     Route: 048
     Dates: start: 20250930, end: 20251010
  8. FLUNITRAZEPAM [Suspect]
     Active Substance: FLUNITRAZEPAM
     Indication: Mental disorder
     Route: 048
     Dates: start: 20250930, end: 20251010
  9. ESTAZOLAM [Suspect]
     Active Substance: ESTAZOLAM
     Indication: Mental disorder
     Route: 048
     Dates: start: 20250930, end: 20251010
  10. ESCITALOPRAM OXALATE [Suspect]
     Active Substance: ESCITALOPRAM OXALATE
     Indication: Mental disorder
     Route: 048
     Dates: start: 20250930, end: 20251010
  11. XANAX [Suspect]
     Active Substance: ALPRAZOLAM
     Indication: Mental disorder
     Route: 048
     Dates: start: 20250930, end: 20251010
  12. LORAZEPAM [Suspect]
     Active Substance: LORAZEPAM
     Indication: Feeling of relaxation
     Route: 042
     Dates: start: 20251002, end: 20251003

REACTIONS (3)
  - Hospitalisation [Unknown]
  - Extrapyramidal disorder [Recovered/Resolved]
  - Product use in unapproved indication [Unknown]

NARRATIVE: CASE EVENT DATE: 20251002
